FAERS Safety Report 9889087 (Version 1)
Quarter: 2014Q1

REPORT INFORMATION
  Report Type: Spontaneous
  Country: US (occurrence: US)
  Receive Date: 20140211
  Receipt Date: 20140211
  Transmission Date: 20141002
  Serious: Yes (Death, Hospitalization)
  Sender: FDA-Public Use
  Company Number: US-SA-2014SA015869

PATIENT
  Sex: Female

DRUGS (4)
  1. LANTUS SOLOSTAR [Suspect]
     Route: 051
  2. METFORMIN [Suspect]
     Route: 065
  3. SOLOSTAR [Concomitant]
  4. ALL OTHER THERAPEUTIC PRODUCTS [Concomitant]

REACTIONS (2)
  - Death [Fatal]
  - Gangrene [Unknown]
